FAERS Safety Report 8470405-0 (Version None)
Quarter: 2012Q2

REPORT INFORMATION
  Report Type: 
  Country: None (occurrence: None)
  Receive Date: 20120620
  Receipt Date: 20120613
  Transmission Date: 20120825
  Serious: Yes (Hospitalization, Other)
  Sender: FDA-Public Use
  Company Number: DAV-AE-CLO-12-04

PATIENT
  Age: 8 Year
  Sex: Female

DRUGS (3)
  1. ADDERALL (AMPHETAMINE MIXED SALTS) [Concomitant]
  2. RISPERIDONE [Concomitant]
  3. CLONIDINE [Suspect]
     Indication: ATTENTION DEFICIT/HYPERACTIVITY DISORDER
     Dosage: 0.4 MG HS,

REACTIONS (8)
  - URINE KETONE BODY PRESENT [None]
  - VIRAL INFECTION [None]
  - ABDOMINAL PAIN [None]
  - VOMITING [None]
  - GRAND MAL CONVULSION [None]
  - WITHDRAWAL SYNDROME [None]
  - INTESTINAL OBSTRUCTION [None]
  - MALIGNANT HYPERTENSION [None]
